FAERS Safety Report 7726686-1 (Version None)
Quarter: 2011Q3

REPORT INFORMATION
  Report Type: 
  Country: None (occurrence: None)
  Receive Date: 20110902
  Receipt Date: 20110902
  Transmission Date: 20111222
  Serious: Yes (Other)
  Sender: FDA-Public Use
  Company Number: None

PATIENT
  Sex: Male
  Weight: 108.86 kg

DRUGS (2)
  1. ALPRAZOLAM [Suspect]
     Indication: PANIC ATTACK
     Dosage: 1/2 MG QID + 1 MG HS PRN
     Route: 048
     Dates: start: 20110729, end: 20110822
  2. ALPRAZOLAM [Suspect]
     Indication: ANXIETY
     Dosage: 1/2 MG QID + 1 MG HS PRN
     Route: 048
     Dates: start: 20110729, end: 20110822

REACTIONS (2)
  - DRUG EFFECT DECREASED [None]
  - PRODUCT SUBSTITUTION ISSUE [None]
